FAERS Safety Report 9306744 (Version 1)
Quarter: 2013Q1

REPORT INFORMATION
  Report Type: Spontaneous
  Country: CN (occurrence: None)
  Receive Date: 20130322
  Receipt Date: 20130322
  Transmission Date: 20140127
  Serious: Yes (Hospitalization)
  Sender: FDA-Public Use
  Company Number: VAL_02232_2013

PATIENT
  Age: 24 Year
  Sex: Male

DRUGS (6)
  1. PARLODEL [Suspect]
     Indication: HORMONE LEVEL ABNORMAL
     Route: 048
     Dates: start: 20090802, end: 20100105
  2. PARLODEL [Suspect]
     Indication: ERECTILE DYSFUNCTION
     Route: 048
     Dates: start: 20090802, end: 20100105
  3. CHINESE MEDICINE (HUI CHUN TANG NUMBER 3) [Concomitant]
  4. CHINESE MEDICINE (HUI CHUN ZHUANG YANG NUMBER 2) [Concomitant]
  5. CHINESE MEDICINE (TONG JING NUMBER 3) [Concomitant]
  6. CHINESE MEDICINE (HUI CHUN ZHUANG YANG NUMBER 1) [Concomitant]

REACTIONS (9)
  - Pyrexia [None]
  - Vomiting [None]
  - Fatigue [None]
  - Appetite disorder [None]
  - Nausea [None]
  - Chromaturia [None]
  - Drug-induced liver injury [None]
  - Skin discolouration [None]
  - Cholelithiasis [None]
